FAERS Safety Report 4548878-5 (Version None)
Quarter: 2005Q1

REPORT INFORMATION
  Report Type: 
  Country: None (occurrence: None)
  Receive Date: 20041227
  Receipt Date: 20040929
  Transmission Date: 20050727
  Serious: No
  Sender: FDA-Public Use
  Company Number: 04P-163-0276198-00

PATIENT
  Age: 81 Year
  Sex: Female
  Weight: 49.8957 kg

DRUGS (13)
  1. HUMIRA [Suspect]
     Indication: RHEUMATOID ARTHRITIS
     Dosage: 40 MG, 1 IN 2 WK, SUBCUTANEOUS
     Route: 059
     Dates: start: 20040917
  2. FUROSEMIDE [Concomitant]
  3. POTASSIUM CHLORIDE [Concomitant]
  4. CALCIUM GLUCONATE [Concomitant]
  5. LEVOTHYROXINE SODIUM [Concomitant]
  6. RALOXIFENE HCL [Concomitant]
  7. AZATHIOPRINE [Concomitant]
  8. VOLTAREN [Concomitant]
  9. DIOVAN [Concomitant]
  10. FOLIC ACID [Concomitant]
  11. MULTI-VITAMINS [Concomitant]
  12. TOCOPHEROL CONCENTRATE CAP [Concomitant]
  13. ALENDRONATE SODIUM [Concomitant]

REACTIONS (3)
  - DIZZINESS [None]
  - NAUSEA [None]
  - VOMITING [None]
